FAERS Safety Report 26198035 (Version 1)
Quarter: 2025Q4

REPORT INFORMATION
  Report Type: Spontaneous
  Country: JP (occurrence: JP)
  Receive Date: 20251224
  Receipt Date: 20251224
  Transmission Date: 20260118
  Serious: Yes (Hospitalization, Other)
  Sender: BRISTOL-MYERS SQUIBB COMPANY
  Company Number: JP-BRISTOL-MYERS SQUIBB COMPANY-2025-171296

PATIENT
  Age: 78 Year
  Sex: Male

DRUGS (1)
  1. REBLOZYL [Suspect]
     Active Substance: LUSPATERCEPT-AAMT
     Indication: Myelodysplastic syndrome with ringed sideroblasts
     Route: 058
     Dates: start: 202511

REACTIONS (3)
  - Pneumonia [Recovering/Resolving]
  - Dehydration [Recovering/Resolving]
  - Dose calculation error [Unknown]

NARRATIVE: CASE EVENT DATE: 20251101
